FAERS Safety Report 9170066 (Version 1)
Quarter: 2013Q1

REPORT INFORMATION
  Report Type: Spontaneous
  Country: IT (occurrence: None)
  Receive Date: 20130311
  Receipt Date: 20130311
  Transmission Date: 20140127
  Serious: Yes (Life-Threatening, Hospitalization)
  Sender: FDA-Public Use
  Company Number: SYM-2013-01456

PATIENT
  Age: 54 Year
  Sex: Male

DRUGS (4)
  1. 5-FU [Suspect]
     Indication: COLORECTAL CANCER METASTATIC
     Dates: start: 20121029, end: 20121029
  2. AFLIBERCEPT [Suspect]
     Indication: COLORECTAL CANCER METASTATIC
     Dates: start: 20121029, end: 20121029
  3. IRINOTECAN [Suspect]
     Indication: COLORECTAL CANCER METASTATIC
     Dates: start: 20121029, end: 20121029
  4. LEUCOVORIN [Suspect]
     Indication: COLORECTAL CANCER METASTATIC
     Dates: start: 20121029, end: 20121029

REACTIONS (6)
  - Diarrhoea [None]
  - Vomiting [None]
  - Hypotension [None]
  - Renal failure [None]
  - Dehydration [None]
  - Asthenia [None]
